FAERS Safety Report 6610938-2 (Version None)
Quarter: 2010Q1

REPORT INFORMATION
  Report Type: 
  Country: None (occurrence: None)
  Receive Date: 20100222
  Receipt Date: 20100210
  Transmission Date: 20100710
  Serious: Yes (Hospitalization)
  Sender: FDA-Public Use
  Company Number: 002022

PATIENT
  Sex: Male
  Weight: 86 kg

DRUGS (7)
  1. NEUPRO [Suspect]
     Indication: PARKINSON'S DISEASE
     Dosage: 2 MG QD  TRANSDERMAL
     Route: 062
     Dates: start: 20070928, end: 20070929
  2. OMEPRAZOLE [Concomitant]
  3. BETAHISTINE [Concomitant]
  4. RAMIPRIL [Concomitant]
  5. ASPIRIN [Concomitant]
  6. AZILECT [Concomitant]
  7. DOPADURA C [Concomitant]

REACTIONS (1)
  - CHOLECYSTITIS ACUTE [None]
